FAERS Safety Report 17521367 (Version 2)
Quarter: 2020Q2

REPORT INFORMATION
  Report Type: Report from Study
  Country: IT (occurrence: IT)
  Receive Date: 20200310
  Receipt Date: 20200417
  Transmission Date: 20200713
  Serious: Yes (Hospitalization)
  Sender: FDA-Public Use
  Company Number: IT-MYLANLABS-2020M1024753

PATIENT
  Age: 79 Year
  Sex: Female

DRUGS (2)
  1. TAVOR (LORAZEPAM) [Suspect]
     Active Substance: LORAZEPAM
     Indication: ANXIETY
     Dosage: 10 MILLIGRAM, TOTAL
     Route: 048
     Dates: start: 20200128, end: 20200128
  2. QUETIAPINE. [Suspect]
     Active Substance: QUETIAPINE
     Indication: MENTAL DISORDER
     Dosage: 300 MILLIGRAM, TOTAL
     Route: 048
     Dates: start: 20200128, end: 20200128

REACTIONS (3)
  - Depressed level of consciousness [Unknown]
  - Electrocardiogram QT prolonged [Unknown]
  - Medication error [Unknown]

NARRATIVE: CASE EVENT DATE: 20200128
